FAERS Safety Report 17438811 (Version 7)
Quarter: 2020Q2

REPORT INFORMATION
  Report Type: Report from Study
  Country: US (occurrence: US)
  Receive Date: 20200220
  Receipt Date: 20200414
  Transmission Date: 20200713
  Serious: Yes (Life-Threatening, Hospitalization, Other)
  Sender: FDA-Public Use
  Company Number: NVSC2020US037963

PATIENT
  Age: 1 Year
  Sex: Female
  Weight: 14 kg

DRUGS (41)
  1. TRAMETINIB [Suspect]
     Active Substance: TRAMETINIB
     Indication: NEUROFIBROMATOSIS
     Dosage: 0.3 MG, QD
     Route: 048
     Dates: start: 20171130, end: 20180423
  2. ALBUTEROL. [Concomitant]
     Active Substance: ALBUTEROL
     Indication: PRODUCT USED FOR UNKNOWN INDICATION
     Dosage: 2.5 MG, QD ((0.083 %) NEBULIZER)
     Route: 055
  3. WHITE PETROLATUM [Concomitant]
     Active Substance: PETROLATUM
     Indication: PRODUCT USED FOR UNKNOWN INDICATION
     Dosage: UNK, TID
     Route: 061
  4. MELATONIN [Concomitant]
     Active Substance: MELATONIN
     Indication: PRODUCT USED FOR UNKNOWN INDICATION
     Dosage: 2 MG, PRN (G-TUB)
     Route: 048
  5. LACTOBACILLUS RHAMNOSUS [Concomitant]
     Active Substance: LACTOBACILLUS RHAMNOSUS
     Indication: PRODUCT USED FOR UNKNOWN INDICATION
     Dosage: 1 DF, QD
     Route: 048
  6. NACL [Concomitant]
     Active Substance: SODIUM CHLORIDE
     Indication: PRODUCT USED FOR UNKNOWN INDICATION
     Dosage: 250 ML, PRN
     Route: 042
  7. NACL [Concomitant]
     Active Substance: SODIUM CHLORIDE
     Dosage: 50 ML, PRN
     Route: 042
  8. KLONOPIN [Concomitant]
     Active Substance: CLONAZEPAM
     Indication: PRODUCT USED FOR UNKNOWN INDICATION
     Route: 065
  9. PEDIALYTE [Concomitant]
     Active Substance: POTASSIUM CITRATE\SODIUM CITRATE\ZINC
     Indication: PROPHYLAXIS
     Route: 065
  10. ZINC OXIDE. [Concomitant]
     Active Substance: ZINC OXIDE
     Indication: PRODUCT USED FOR UNKNOWN INDICATION
     Dosage: UNK, PRN
     Route: 061
  11. NACL [Concomitant]
     Active Substance: SODIUM CHLORIDE
     Dosage: 3 ML, BID
     Route: 055
  12. NYSTATIN. [Concomitant]
     Active Substance: NYSTATIN
     Indication: PRODUCT USED FOR UNKNOWN INDICATION
     Dosage: UNK, BID (PRN)
     Route: 061
  13. MEPILEX AG [Concomitant]
     Active Substance: ACTIVATED CHARCOAL\SILVER SULFATE
     Indication: PRODUCT USED FOR UNKNOWN INDICATION
     Dosage: UNK (SILVER SULFATE-FOAM BANDAGE 6 X 6)
     Route: 065
  14. KENALOG [Concomitant]
     Active Substance: TRIAMCINOLONE ACETONIDE
     Indication: PRODUCT USED FOR UNKNOWN INDICATION
     Dosage: UNK, BID (APPLY TO AFFECTED AREA TWICE DAILY FOR 10)
     Route: 065
  15. ACETAMINOPHEN. [Concomitant]
     Active Substance: ACETAMINOPHEN
     Indication: PRODUCT USED FOR UNKNOWN INDICATION
     Dosage: 15 MG/KG, Q6H (PRN)
     Route: 048
  16. ALBUTEROL. [Concomitant]
     Active Substance: ALBUTEROL
     Dosage: 2.5 MG, TID
     Route: 055
  17. CETIRIZINE [Concomitant]
     Active Substance: CETIRIZINE HYDROCHLORIDE
     Indication: PRODUCT USED FOR UNKNOWN INDICATION
     Dosage: 2.5 MG, QD
     Route: 065
  18. FLONASE [Concomitant]
     Active Substance: FLUTICASONE PROPIONATE
     Indication: PRODUCT USED FOR UNKNOWN INDICATION
     Dosage: 1 DF, QD (EACH NOSTRIL)
     Route: 061
  19. KEPPRA [Concomitant]
     Active Substance: LEVETIRACETAM
     Indication: PRODUCT USED FOR UNKNOWN INDICATION
     Dosage: 250 MG, Q12H
     Route: 065
  20. AQUAPHOR HEALING [Concomitant]
     Active Substance: PETROLATUM
     Indication: PRODUCT USED FOR UNKNOWN INDICATION
     Dosage: UNK (APPLY AA TID PRF DRY SKIN)
     Route: 065
  21. FAMOTIDINE. [Concomitant]
     Active Substance: FAMOTIDINE
     Indication: PRODUCT USED FOR UNKNOWN INDICATION
     Dosage: 6.4 MG, Q12H
     Route: 065
  22. WESTCORT [Concomitant]
     Active Substance: HYDROCORTISONE VALERATE
     Indication: PRODUCT USED FOR UNKNOWN INDICATION
     Dosage: BID (APPLY TO FACE AS NEEDED)
     Route: 061
  23. IBUPROFEN. [Concomitant]
     Active Substance: IBUPROFEN
     Dosage: 120 MG, Q6H (PRN)
     Route: 065
  24. GLYCERIN. [Concomitant]
     Active Substance: GLYCERIN
     Indication: PRODUCT USED FOR UNKNOWN INDICATION
     Dosage: 2.7 ML, QD
     Route: 054
  25. DESITIN [Concomitant]
     Active Substance: ZINC OXIDE
     Indication: PRODUCT USED FOR UNKNOWN INDICATION
     Dosage: UNK, PRN (PERI-AREA AND BUTTOCKS)
     Route: 061
  26. BACTROBAN [Concomitant]
     Active Substance: MUPIROCIN\MUPIROCIN CALCIUM
     Indication: PRODUCT USED FOR UNKNOWN INDICATION
     Dosage: (APPLY TO THE AFFECTED AREA THREE)
     Route: 065
  27. POLYETHYLENE GLYCOL [Concomitant]
     Active Substance: POLYETHYLENE GLYCOLS
     Indication: PRODUCT USED FOR UNKNOWN INDICATION
     Dosage: 17 G, QD
     Route: 048
  28. NACL [Concomitant]
     Active Substance: SODIUM CHLORIDE
     Dosage: 250 ML, PRN
     Route: 042
  29. SULFAMETHOXAZOLE AND TRIMETHOPRIM [Concomitant]
     Active Substance: SULFAMETHOXAZOLE\TRIMETHOPRIM
     Indication: PRODUCT USED FOR UNKNOWN INDICATION
     Dosage: 2 MG/KG, QD AT 18:00
  30. PEPCID [Concomitant]
     Active Substance: FAMOTIDINE
     Indication: PRODUCT USED FOR UNKNOWN INDICATION
     Dosage: 8 MG/ML
     Route: 048
  31. MELATONIN [Concomitant]
     Active Substance: MELATONIN
     Dosage: 3 MG, QN
     Route: 048
  32. GLYCOLAX [Concomitant]
     Active Substance: POLYETHYLENE GLYCOL 3350
     Indication: PRODUCT USED FOR UNKNOWN INDICATION
     Dosage: (GIVE 2 CAPFULS PER G-TUBE EVERY
     Route: 065
  33. TRAMETINIB [Suspect]
     Active Substance: TRAMETINIB
     Dosage: 0.3 MG, QD (6 ML LIQUID)
     Route: 048
     Dates: start: 20180427
  34. TRAMETINIB [Suspect]
     Active Substance: TRAMETINIB
     Dosage: 0.05 MG/ML, QD (GIVE 6ML DAILY)
     Route: 048
  35. IBUPROFEN. [Concomitant]
     Active Substance: IBUPROFEN
     Indication: PRODUCT USED FOR UNKNOWN INDICATION
     Dosage: 10 MG/KG, Q6H (120 MG)
     Route: 048
  36. LIVEROIL [Concomitant]
     Active Substance: COD LIVER OIL
     Indication: PRODUCT USED FOR UNKNOWN INDICATION
     Dosage: UNK, PRN
     Route: 061
  37. NACL [Concomitant]
     Active Substance: SODIUM CHLORIDE
     Dosage: 50 ML, PRN
     Route: 042
  38. TRAMETINIB [Suspect]
     Active Substance: TRAMETINIB
     Dosage: 0.3 MG, QD
     Route: 048
     Dates: start: 20200212
  39. MUPIROCIN. [Concomitant]
     Active Substance: MUPIROCIN
     Indication: PRODUCT USED FOR UNKNOWN INDICATION
     Dosage: UNK, TID (PRN)
     Route: 061
  40. CLOTRIMAZOL [Concomitant]
     Active Substance: CLOTRIMAZOLE
     Indication: PRODUCT USED FOR UNKNOWN INDICATION
     Dosage: UNK, BID
     Route: 061
  41. SIMETHICONE (DIMETHICONE) [Concomitant]
     Active Substance: DIMETHICONE
     Indication: PRODUCT USED FOR UNKNOWN INDICATION
     Dosage: 40 MG, PRN (4-TIMES DAILY)
     Route: 065

REACTIONS (49)
  - Enterovirus infection [Recovering/Resolving]
  - Respiratory failure [Not Recovered/Not Resolved]
  - Secretion discharge [Unknown]
  - Mean cell volume increased [Unknown]
  - Hyponatraemia [Unknown]
  - Chills [Unknown]
  - Laryngeal pain [Unknown]
  - Nail infection [Recovered/Resolved]
  - Nasal congestion [Recovered/Resolved]
  - Sepsis [Unknown]
  - Seizure [Unknown]
  - Device related infection [Recovered/Resolved]
  - Hypoxia [Recovered/Resolved]
  - Pyrexia [Recovered/Resolved]
  - Retching [Unknown]
  - Pyrexia [Recovered/Resolved]
  - Pyrexia [Recovered/Resolved]
  - Capillary fragility decreased [Unknown]
  - Blood creatinine increased [Unknown]
  - Pyrexia [Recovered/Resolved]
  - Pseudomonal bacteraemia [Unknown]
  - Atelectasis [Unknown]
  - Pyrexia [Recovered/Resolved]
  - Constipation [Recovered/Resolved]
  - Upper respiratory tract infection [Recovering/Resolving]
  - White blood cell count increased [Unknown]
  - Tracheal inflammation [Unknown]
  - Anaemia [Recovered/Resolved]
  - Pyrexia [Recovered/Resolved]
  - Respiratory syncytial virus test positive [Unknown]
  - Bronchiolitis [Unknown]
  - Gastrooesophageal reflux disease [Unknown]
  - Hypoacusis [Unknown]
  - Cough [Unknown]
  - Asthenia [Unknown]
  - Oxygen consumption increased [Recovering/Resolving]
  - Tracheal oedema [Unknown]
  - Enterococcus test positive [Unknown]
  - Tremor [Unknown]
  - Diarrhoea [Unknown]
  - Urinary tract infection [Recovered/Resolved]
  - Hyperkalaemia [Unknown]
  - Hypoxia [Unknown]
  - Bronchitis [Unknown]
  - Rhinorrhoea [Unknown]
  - Mean cell haemoglobin increased [Unknown]
  - Dyspnoea [Unknown]
  - Rhinovirus infection [Recovering/Resolving]
  - Paronychia [Unknown]

NARRATIVE: CASE EVENT DATE: 20180423
